FAERS Safety Report 4923670-8 (Version None)
Quarter: 2006Q1

REPORT INFORMATION
  Report Type: 
  Country: None (occurrence: None)
  Receive Date: 20060227
  Receipt Date: 20041214
  Transmission Date: 20060701
  Serious: Yes (Hospitalization, Other)
  Sender: FDA-Public Use
  Company Number: US-MERCK-0412USA01797

PATIENT
  Age: 65 Year
  Sex: Male
  Weight: 73 kg

DRUGS (8)
  1. VIOXX [Suspect]
     Indication: ARTHRITIS
     Route: 048
     Dates: start: 20010101, end: 20040101
  2. VIOXX [Suspect]
     Indication: BACK PAIN
     Route: 048
     Dates: start: 20010101, end: 20040101
  3. ASPIRIN [Concomitant]
     Indication: ANTICOAGULANT THERAPY
     Route: 065
  4. DILTIAZEM HYDROCHLORIDE [Concomitant]
     Route: 065
  5. PLAVIX [Concomitant]
     Route: 065
  6. VITAMINS (UNSPECIFIED) [Concomitant]
     Route: 065
  7. VITAMIN E [Concomitant]
     Route: 065
  8. CALCIUM (UNSPECIFIED) [Concomitant]
     Route: 065

REACTIONS (16)
  - ACUTE MYOCARDIAL INFARCTION [None]
  - ANGINA PECTORIS [None]
  - ATRIAL FIBRILLATION [None]
  - BLADDER DISORDER [None]
  - BRONCHITIS [None]
  - CARDIAC DISORDER [None]
  - CHEST PAIN [None]
  - CORONARY ARTERY DISEASE [None]
  - CORONARY ARTERY THROMBOSIS [None]
  - EJECTION FRACTION DECREASED [None]
  - INJURY [None]
  - LIMB INJURY [None]
  - NEPHROLITHIASIS [None]
  - PNEUMONIA [None]
  - PROSTATE CANCER [None]
  - SINUS BRADYCARDIA [None]
